FAERS Safety Report 18215505 (Version 1)
Quarter: 2020Q3

REPORT INFORMATION
  Report Type: Spontaneous
  Country: AU (occurrence: AU)
  Receive Date: 20200901
  Receipt Date: 20200901
  Transmission Date: 20201103
  Serious: Yes (Other)
  Sender: FDA-Public Use
  Company Number: AU-SUN PHARMACEUTICAL INDUSTRIES LTD-2020RR-258945

PATIENT
  Age: 21 Year
  Sex: Female

DRUGS (3)
  1. TEZACAFTOR/IVACAFTOR [Suspect]
     Active Substance: IVACAFTOR\TEZACAFTOR
     Indication: CYSTIC FIBROSIS
     Dosage: UNK
     Route: 065
     Dates: start: 2016
  2. TEZACAFTOR/IVACAFTOR [Suspect]
     Active Substance: IVACAFTOR\TEZACAFTOR
     Dosage: UNK
     Route: 065
     Dates: start: 2018
  3. AZITHROMYCIN ANHYDROUS. [Suspect]
     Active Substance: AZITHROMYCIN ANHYDROUS
     Indication: CYSTIC FIBROSIS
     Dosage: UNK
     Route: 065
     Dates: start: 2011

REACTIONS (1)
  - Atrioventricular block first degree [Unknown]
